FAERS Safety Report 9982207 (Version 1)
Quarter: 2014Q1

REPORT INFORMATION
  Report Type: Report from Study
  Country: US (occurrence: US)
  Receive Date: 20140307
  Receipt Date: 20140307
  Transmission Date: 20141002
  Serious: No
  Sender: FDA-Public Use
  Company Number: US-ABBVIE-13P-163-1179483-00

PATIENT
  Age: 22 Year
  Sex: Male

DRUGS (7)
  1. HUMIRA [Suspect]
     Indication: CROHN^S DISEASE
     Dosage: LOADING DOSE
     Dates: start: 20131107, end: 20131107
  2. HUMIRA [Suspect]
     Dosage: SECOND LOADING DOSE
     Dates: start: 20131121, end: 20131121
  3. HUMIRA [Suspect]
     Dates: start: 20131205
  4. APRISO [Concomitant]
     Indication: CROHN^S DISEASE
     Route: 048
  5. AMILORIDE HCL/HCTZ [Concomitant]
     Indication: HYPERTENSION
     Route: 048
  6. BUPROPION [Concomitant]
     Indication: DEPRESSION
  7. OMEPRAZOLE [Concomitant]
     Indication: CROHN^S DISEASE
     Route: 048

REACTIONS (1)
  - Rash [Not Recovered/Not Resolved]
